FAERS Safety Report 6006761-2 (Version None)
Quarter: 2008Q4

REPORT INFORMATION
  Report Type: 
  Country: None (occurrence: None)
  Receive Date: 20081217
  Receipt Date: 20081210
  Transmission Date: 20090506
  Serious: Yes (Death)
  Sender: FDA-Public Use
  Company Number: GB-TEVA-182289ISR

PATIENT
  Age: 39 Year
  Sex: Male

DRUGS (4)
  1. DIAZEPAM [Suspect]
  2. COCAINE [Interacting]
  3. DIAMORPHINE [Interacting]
  4. BUPRENORPHINE HYDROCHLORIDE [Interacting]

REACTIONS (3)
  - DRUG INTERACTION [None]
  - NERVOUS SYSTEM DISORDER [None]
  - OVERDOSE [None]
